FAERS Safety Report 8905623 (Version 1)
Quarter: 2012Q4

REPORT INFORMATION
  Report Type: 
  Country: FR (occurrence: FR)
  Receive Date: 20121113
  Receipt Date: 20121113
  Transmission Date: 20130627
  Serious: Yes (Hospitalization)
  Sender: FDA-Public Use
  Company Number: FR-ARROW-2012-19349

PATIENT
  Age: 49 Year
  Sex: Female

DRUGS (4)
  1. TERBUTALINE [Suspect]
     Indication: ASTHMA
     Dosage: 5 mg/2 mL inhaled in 2 hours
  2. SALBUTAMOL (UNKNOWN) [Suspect]
     Indication: ASTHMA
     Dosage: UNK, unknown
     Route: 065
  3. IPRATROPIUM [Concomitant]
     Indication: ASTHMA
     Dosage: 0.5 mg/2 mL inhaled in 2 hours
  4. METHYLPREDNISOLONE [Concomitant]
     Indication: ASTHMA
     Dosage: 120 mg
     Route: 042

REACTIONS (1)
  - Lactic acidosis [Recovered/Resolved]
